FAERS Safety Report 8422593-X (Version None)
Quarter: 2012Q2

REPORT INFORMATION
  Report Type: 
  Country: None (occurrence: None)
  Receive Date: 20120608
  Receipt Date: 20120530
  Transmission Date: 20120825
  Serious: Yes (Hospitalization)
  Sender: FDA-Public Use
  Company Number: US-ABBOTT-12P-163-0941136-00

PATIENT
  Sex: Female

DRUGS (1)
  1. CREON [Suspect]
     Indication: PANCREATIC DISORDER
     Dates: start: 20100101, end: 20110601

REACTIONS (5)
  - LIP SWELLING [None]
  - HEART RATE INCREASED [None]
  - OEDEMA MOUTH [None]
  - DYSPNOEA [None]
  - HYPERTENSION [None]
